FAERS Safety Report 9259294 (Version 3)
Quarter: 2013Q4

REPORT INFORMATION
  Report Type: Spontaneous
  Country: HU (occurrence: HU)
  Receive Date: 20130427
  Receipt Date: 20131113
  Transmission Date: 20140711
  Serious: Yes (Other)
  Sender: FDA-Public Use
  Company Number: HU-UCBSA-084259

PATIENT
  Age: 72 Year
  Sex: Female
  Weight: 58 kg

DRUGS (8)
  1. CIMZIA [Suspect]
     Indication: RHEUMATOID ARTHRITIS
     Route: 058
     Dates: start: 20120710, end: 20130214
  2. CIMZIA [Suspect]
     Indication: RHEUMATOID ARTHRITIS
     Route: 058
     Dates: start: 20120529, end: 20120626
  3. TREXAN [Concomitant]
     Indication: RHEUMATOID ARTHRITIS
     Dosage: DOSE: 8
     Route: 048
     Dates: start: 2007
  4. TREXAN [Concomitant]
     Indication: RHEUMATOID ARTHRITIS
     Dosage: FREQ: WEEKLY
     Route: 048
     Dates: end: 20120411
  5. TREXAN [Concomitant]
     Indication: RHEUMATOID ARTHRITIS
     Dosage: FREQ: WEEKLY
     Route: 048
     Dates: start: 20120411
  6. FOLIC ACID [Concomitant]
     Indication: PROPHYLAXIS
     Route: 048
  7. CALCISEDRON [Concomitant]
     Indication: OSTEOPOROSIS
     Route: 048
  8. MEDROL [Concomitant]
     Indication: RHEUMATOID ARTHRITIS
     Dosage: UNKNOWN DOSE
     Route: 048
     Dates: start: 2007, end: 201205

REACTIONS (2)
  - Pulmonary fibrosis [Not Recovered/Not Resolved]
  - Lung disorder [Recovered/Resolved]
